FAERS Safety Report 19443262 (Version 2)
Quarter: 2021Q3

REPORT INFORMATION
  Report Type: Report from Study
  Country: BE (occurrence: BE)
  Receive Date: 20210621
  Receipt Date: 20210913
  Transmission Date: 20211014
  Serious: Yes (Death, Hospitalization)
  Sender: FDA-Public Use
  Company Number: BE-PFIZER INC-2021661858

PATIENT
  Age: 79 Year
  Sex: Male
  Weight: 72.5 kg

DRUGS (23)
  1. ATEZOLIZUMAB. [Suspect]
     Active Substance: ATEZOLIZUMAB
     Indication: SMALL CELL LUNG CANCER EXTENSIVE STAGE
     Dosage: 1200 MG, EVERY 3 WEEKS
     Route: 042
     Dates: start: 20200622
  2. LATANOPROST. [Concomitant]
     Active Substance: LATANOPROST
     Indication: INTRAOCULAR PRESSURE INCREASED
     Dosage: UNK
  3. STEOVIT D3 [Concomitant]
     Active Substance: CALCIUM CARBONATE\CHOLECALCIFEROL
     Indication: METASTASES TO BONE
     Dosage: UNK, 1X/DAY
     Dates: start: 20201009, end: 20201012
  4. ATEZOLIZUMAB. [Suspect]
     Active Substance: ATEZOLIZUMAB
     Dosage: 1200 MG, EVERY 3 WEEKS (NEXT DOSE WAS ADMINISTEREDON 02NOV2020, 23NOV2020)
     Route: 042
     Dates: start: 20201012
  5. UROKINASE [Concomitant]
     Active Substance: UROKINASE
     Indication: DEVICE RELATED THROMBOSIS
     Dosage: UNK UNK, 1X/DAY
     Dates: start: 20200826, end: 20200826
  6. ATEZOLIZUMAB. [Suspect]
     Active Substance: ATEZOLIZUMAB
     Dosage: 1200 MG, EVERY 3 WEEKS
     Route: 042
     Dates: start: 20200825
  7. AMIODARONE [Concomitant]
     Active Substance: AMIODARONE
     Dosage: UNK, 2X/DAY
     Dates: start: 20200704, end: 20200710
  8. AMIODARONE [Concomitant]
     Active Substance: AMIODARONE
     Dosage: UNK, 1X/DAY
     Dates: start: 20200711
  9. ATEZOLIZUMAB. [Suspect]
     Active Substance: ATEZOLIZUMAB
     Dosage: 1200 MG, EVERY 3 WEEKS
     Route: 042
     Dates: start: 20200803
  10. MAGNESIUM GLUCONATE [Concomitant]
     Active Substance: MAGNESIUM GLUCONATE
     Indication: PROPHYLAXIS
     Dosage: UNK
     Dates: start: 20200623, end: 20200903
  11. CARBOPLATIN. [Suspect]
     Active Substance: CARBOPLATIN
     Indication: SMALL CELL LUNG CANCER EXTENSIVE STAGE
     Dosage: 400 MG
     Route: 065
     Dates: start: 20200622
  12. ATEZOLIZUMAB. [Suspect]
     Active Substance: ATEZOLIZUMAB
     Dosage: 1200 MG, EVERY 3 WEEKS
     Route: 041
     Dates: start: 20200914
  13. ALLOPURINOL. [Concomitant]
     Active Substance: ALLOPURINOL
     Indication: PROPHYLAXIS
     Dates: start: 20200617
  14. ATEZOLIZUMAB. [Suspect]
     Active Substance: ATEZOLIZUMAB
     Dosage: 1200 MG, EVERY 3 WEEKS
     Route: 042
     Dates: start: 20200713
  15. ATEZOLIZUMAB. [Suspect]
     Active Substance: ATEZOLIZUMAB
     Dosage: 1200 MG, EVERY 3 WEEKS
     Route: 042
     Dates: start: 20200824
  16. MEDROL [Concomitant]
     Active Substance: METHYLPREDNISOLONE
     Indication: LUNG NEOPLASM MALIGNANT
     Dosage: UNK
     Dates: start: 20200625
  17. LACTULOSE. [Concomitant]
     Active Substance: LACTULOSE
     Indication: CONSTIPATION
     Dates: start: 20200622
  18. AMIODARONE [Concomitant]
     Active Substance: AMIODARONE
     Indication: ATRIAL FIBRILLATION
     Dosage: UNK, 3X/DAY
     Dates: start: 20200627, end: 20200703
  19. PANTOPRAZOLE [Concomitant]
     Active Substance: PANTOPRAZOLE
     Indication: PROPHYLAXIS
     Dosage: UNK
     Dates: start: 20200625
  20. ATORVASTATINE [ATORVASTATIN] [Concomitant]
     Active Substance: ATORVASTATIN
     Indication: HYPERCHOLESTEROLAEMIA
     Dosage: UNK
     Dates: start: 2014
  21. ETOPOSIDE. [Suspect]
     Active Substance: ETOPOSIDE
     Indication: SMALL CELL LUNG CANCER EXTENSIVE STAGE
     Dosage: 145 MG
     Route: 065
     Dates: start: 20200622
  22. TINZAPARINE SODIQUE [Concomitant]
     Active Substance: TINZAPARIN SODIUM
     Indication: PROPHYLAXIS
     Dosage: UNK, 1X/DAY
     Dates: start: 20200628
  23. LORAZEPAM. [Concomitant]
     Active Substance: LORAZEPAM
     Indication: INSOMNIA
     Dosage: UNK, 1X/DAY
     Dates: start: 20200621

REACTIONS (2)
  - Pneumonia [Recovered/Resolved]
  - Nausea [Recovered/Resolved]

NARRATIVE: CASE EVENT DATE: 20201004
